FAERS Safety Report 19090659 (Version 3)
Quarter: 2022Q2

REPORT INFORMATION
  Report Type: Spontaneous
  Country: US (occurrence: US)
  Receive Date: 20210405
  Receipt Date: 20220618
  Transmission Date: 20220721
  Serious: No
  Sender: FDA-Public Use
  Company Number: US-SA-SAC20210401001434

PATIENT
  Sex: Female

DRUGS (13)
  1. DUPIXENT [Suspect]
     Active Substance: DUPILUMAB
     Indication: Psoriatic arthropathy
     Dosage: 300 MG, QOW
     Route: 058
  2. BENADRYL ALLERGY [Concomitant]
     Active Substance: DIPHENHYDRAMINE HYDROCHLORIDE
  3. PREMPRO [Concomitant]
     Active Substance: ESTROGENS, CONJUGATED\MEDROXYPROGESTERONE ACETATE
  4. LORATADINE [Concomitant]
     Active Substance: LORATADINE
  5. VITAMIN B12 [Concomitant]
     Active Substance: CYANOCOBALAMIN
  6. LOSARTAN POTASSIUM [Concomitant]
     Active Substance: LOSARTAN POTASSIUM
  7. METHOTREXATE [Concomitant]
     Active Substance: METHOTREXATE
  8. BIOTIN [Concomitant]
     Active Substance: BIOTIN
  9. TYLENOL [Concomitant]
     Active Substance: ACETAMINOPHEN
  10. BACTRIM [Concomitant]
     Active Substance: SULFAMETHOXAZOLE\TRIMETHOPRIM
  11. COLLAGEN [Concomitant]
     Active Substance: COLLAGEN
  12. FISH OIL [Concomitant]
     Active Substance: FISH OIL
  13. VITAMIN B12 [Concomitant]
     Active Substance: CYANOCOBALAMIN

REACTIONS (4)
  - Weight increased [Unknown]
  - Feeling hot [Unknown]
  - Erythema [Unknown]
  - Product use in unapproved indication [Unknown]
